FAERS Safety Report 6229467-3 (Version None)
Quarter: 2009Q2

REPORT INFORMATION
  Report Type: 
  Country: None (occurrence: None)
  Receive Date: 20090615
  Receipt Date: 20090608
  Transmission Date: 20091009
  Serious: Yes (Hospitalization)
  Sender: FDA-Public Use
  Company Number: A0761184A

PATIENT
  Age: 62 Year
  Sex: Male
  Weight: 84.1 kg

DRUGS (6)
  1. AVANDIA [Suspect]
     Route: 048
     Dates: start: 19990101, end: 20060101
  2. FUROSEMIDE [Concomitant]
  3. ALTACE [Concomitant]
  4. MAGNESIUM OXIDE [Concomitant]
  5. NEXIUM [Concomitant]
  6. AMIODARONE [Concomitant]

REACTIONS (1)
  - MYOCARDIAL INFARCTION [None]
